FAERS Safety Report 12411707 (Version 1)
Quarter: 2016Q2

REPORT INFORMATION
  Report Type: Spontaneous
  Country: GB (occurrence: GB)
  Receive Date: 20160527
  Receipt Date: 20160527
  Transmission Date: 20160815
  Serious: Yes (Hospitalization)
  Sender: FDA-Public Use
  Company Number: GB-SA-2016SA098270

PATIENT
  Age: 56 Year
  Sex: Female

DRUGS (12)
  1. AMITRIPTYLINE [Concomitant]
     Active Substance: AMITRIPTYLINE
  2. HYPROMELLOSE [Concomitant]
     Active Substance: HYPROMELLOSES
  3. CALCICHEW D3 [Concomitant]
     Active Substance: CALCIUM\CHOLECALCIFEROL
  4. ONDANSETRON [Concomitant]
     Active Substance: ONDANSETRON
  5. PREDNISOLONE. [Concomitant]
     Active Substance: PREDNISOLONE
  6. TRAMADOL. [Concomitant]
     Active Substance: TRAMADOL
  7. FOLIC ACID. [Concomitant]
     Active Substance: FOLIC ACID
  8. LANSOPRAZOLE. [Concomitant]
     Active Substance: LANSOPRAZOLE
  9. LEFLUNOMIDE. [Suspect]
     Active Substance: LEFLUNOMIDE
     Indication: RHEUMATOID ARTHRITIS
     Route: 048
     Dates: end: 20160510
  10. COCODAMOL [Concomitant]
     Active Substance: ACETAMINOPHEN\CODEINE PHOSPHATE
  11. ETORICOXIB [Concomitant]
     Active Substance: ETORICOXIB
  12. RISEDRONATE [Concomitant]
     Active Substance: RISEDRONATE SODIUM

REACTIONS (5)
  - Haematemesis [Not Recovered/Not Resolved]
  - Chest pain [Unknown]
  - Dysuria [Not Recovered/Not Resolved]
  - Nausea [Not Recovered/Not Resolved]
  - Diarrhoea [Not Recovered/Not Resolved]

NARRATIVE: CASE EVENT DATE: 20160414
